FAERS Safety Report 8289429-1 (Version None)
Quarter: 2012Q2

REPORT INFORMATION
  Report Type: 
  Country: None (occurrence: None)
  Receive Date: 20120417
  Receipt Date: 20120411
  Transmission Date: 20120825
  Serious: Yes (Other)
  Sender: FDA-Public Use
  Company Number: BR-SANOFI-AVENTIS-2012SA025545

PATIENT
  Sex: Male
  Weight: 86 kg

DRUGS (7)
  1. ATENOLOL [Concomitant]
     Indication: HYPERTENSION
     Dosage: STARTED 15 OR 18 YEARS AGO
  2. LOSARTAN POTASSIUM [Concomitant]
     Indication: HYPERTENSION
     Dates: start: 20100101
  3. LANTUS [Suspect]
     Indication: TYPE 2 DIABETES MELLITUS
     Dosage: TAKEN FROM- 4-5 YEARS AGO
     Route: 065
  4. MEMANTINE HCL [Concomitant]
  5. SOLOSTAR [Suspect]
     Indication: DEVICE THERAPY
     Dosage: TAKEN FROM: 4 TO 5 YEARS AGO
     Route: 065
  6. DIAMICRON [Concomitant]
     Indication: TYPE 2 DIABETES MELLITUS
     Dosage: STRENGTH: 60MG
     Dates: start: 20100101
  7. GALVUS MET [Concomitant]
     Indication: TYPE 2 DIABETES MELLITUS
     Dosage: STRENGTH: 1000/50 MG

REACTIONS (4)
  - CORONARY ARTERY BYPASS [None]
  - SURGERY [None]
  - CHEST PAIN [None]
  - BLOOD GLUCOSE INCREASED [None]
